FAERS Safety Report 11659757 (Version 3)
Quarter: 2016Q1

REPORT INFORMATION
  Report Type: Report from Study
  Country: US (occurrence: US)
  Receive Date: 20151026
  Receipt Date: 20160303
  Transmission Date: 20160525
  Serious: No
  Sender: FDA-Public Use
  Company Number: US-AMGEN-USASL2015110489

PATIENT
  Age: 68 Year
  Sex: Male
  Weight: 87.53 kg

DRUGS (1)
  1. ENBREL [Suspect]
     Active Substance: ETANERCEPT
     Indication: PSORIATIC ARTHROPATHY
     Dosage: 50 MG, ONCE MONTHLY
     Route: 058
     Dates: start: 20140606, end: 201509

REACTIONS (5)
  - Blister [Recovering/Resolving]
  - Pruritus generalised [Recovering/Resolving]
  - Rash [Recovered/Resolved]
  - Adverse reaction [Recovered/Resolved]
  - Double stranded DNA antibody positive [Recovered/Resolved]

NARRATIVE: CASE EVENT DATE: 2015
